FAERS Safety Report 4617182-9 (Version None)
Quarter: 2005Q1

REPORT INFORMATION
  Report Type: 
  Country: None (occurrence: None)
  Receive Date: 20050323
  Receipt Date: 20050317
  Transmission Date: 20050727
  Serious: Yes (Hospitalization)
  Sender: FDA-Public Use
  Company Number: FR-GLAXOSMITHKLINE-B0375512A

PATIENT
  Age: 41 Year
  Sex: Male

DRUGS (1)
  1. AUGMENTIN '125' [Suspect]
     Dosage: 3UNIT PER DAY
     Route: 048
     Dates: start: 20050120, end: 20050131

REACTIONS (5)
  - ALANINE AMINOTRANSFERASE INCREASED [None]
  - ASPARTATE AMINOTRANSFERASE INCREASED [None]
  - BLOOD ALKALINE PHOSPHATASE INCREASED [None]
  - BLOOD CREATININE ABNORMAL [None]
  - GAMMA-GLUTAMYLTRANSFERASE INCREASED [None]
